FAERS Safety Report 6675982-8 (Version None)
Quarter: 2010Q2

REPORT INFORMATION
  Report Type: 
  Country: None (occurrence: None)
  Receive Date: 20100412
  Receipt Date: 20100401
  Transmission Date: 20101027
  Serious: No
  Sender: FDA-Public Use
  Company Number: US-BIOGENIDEC-2010BI011431

PATIENT
  Age: 39 Year
  Sex: Male

DRUGS (2)
  1. TYSABRI [Suspect]
     Indication: MULTIPLE SCLEROSIS
     Route: 042
     Dates: start: 20090126, end: 20090812
  2. TYSABRI [Suspect]
     Route: 042
     Dates: start: 20091111

REACTIONS (3)
  - FEELING JITTERY [None]
  - INFLUENZA [None]
  - SENSATION OF HEAVINESS [None]
